FAERS Safety Report 17420398 (Version 1)
Quarter: 2020Q3

REPORT INFORMATION
  Report Type: Report from Study
  Country: GB (occurrence: GB)
  Receive Date: 20200214
  Receipt Date: 20200214
  Transmission Date: 20201104
  Serious: Yes (Death)
  Sender: FDA-Public Use
  Company Number: GB-ROCHE-2502223

PATIENT
  Age: 71 Year
  Sex: Male
  Weight: 67.2 kg

DRUGS (3)
  1. BENDAMUSTINE [Concomitant]
     Active Substance: BENDAMUSTINE
     Indication: DIFFUSE LARGE B-CELL LYMPHOMA
     Route: 065
     Dates: start: 20191212
  2. RASBURICASE [Concomitant]
     Active Substance: RASBURICASE
     Route: 065
     Dates: start: 20191212
  3. POLATUZUMAB VEDOTIN. [Suspect]
     Active Substance: POLATUZUMAB VEDOTIN
     Indication: DIFFUSE LARGE B-CELL LYMPHOMA
     Route: 065
     Dates: start: 20191212

REACTIONS (5)
  - Disease progression [Fatal]
  - Hyperkalaemia [Fatal]
  - Tumour lysis syndrome [Fatal]
  - Blood lactate dehydrogenase increased [Fatal]
  - Gastrointestinal disorder [Fatal]

NARRATIVE: CASE EVENT DATE: 20191216
